FAERS Safety Report 15498229 (Version 1)
Quarter: 2018Q4

REPORT INFORMATION
  Report Type: Spontaneous
  Country: US (occurrence: US)
  Receive Date: 20181015
  Receipt Date: 20181015
  Transmission Date: 20190205
  Serious: Yes (Life-Threatening, Other)
  Sender: FDA-Public Use
  Company Number: None

PATIENT
  Age: 77 Year
  Sex: Female

DRUGS (2)
  1. METHOTREXATE. [Suspect]
     Active Substance: METHOTREXATE
     Indication: PRODUCT USED FOR UNKNOWN INDICATION
     Dates: end: 20181014
  2. ORENCIA [Concomitant]
     Active Substance: ABATACEPT
     Dates: start: 20180521

REACTIONS (2)
  - Lung disorder [None]
  - Endothelial dysfunction [None]

NARRATIVE: CASE EVENT DATE: 20181014
